FAERS Safety Report 4592740-9 (Version None)
Quarter: 2005Q1

REPORT INFORMATION
  Report Type: 
  Country: None (occurrence: None)
  Receive Date: 20050228
  Receipt Date: 20050217
  Transmission Date: 20050727
  Serious: Yes (Hospitalization, Other)
  Sender: FDA-Public Use
  Company Number: BR-BRISTOL-MYERS SQUIBB COMPANY-12874616

PATIENT
  Age: 67 Year
  Sex: Male

DRUGS (2)
  1. CARBIDOPA AND LEVODOPA [Suspect]
     Indication: PARKINSON'S DISEASE
     Dosage: DOSE VALUE:  25-50 MG
     Route: 048
     Dates: start: 20050101
  2. RIBOFLAVIN TAB [Concomitant]

REACTIONS (4)
  - COMA [None]
  - CONVULSION [None]
  - DYSKINESIA [None]
  - TREMOR [None]
